FAERS Safety Report 8850474 (Version 2)
Quarter: 2013Q4

REPORT INFORMATION
  Report Type: Spontaneous
  Country: DE (occurrence: DE)
  Receive Date: 20121019
  Receipt Date: 20131119
  Transmission Date: 20140711
  Serious: Yes (Other)
  Sender: FDA-Public Use
  Company Number: DE-009507513-1210DEU007253

PATIENT
  Age: 30 Year
  Sex: Female

DRUGS (3)
  1. SINGULAIR 10 MG FILMTABLETTEN [Suspect]
     Indication: ASTHMA
     Dosage: UNK, QD
     Route: 048
     Dates: start: 2009
  2. ATMADISC [Concomitant]
     Indication: ASTHMA
     Dosage: 1 UNK, UNK
     Route: 065
     Dates: end: 201208
  3. L-THYROXIN [Concomitant]
     Indication: PRODUCT USED FOR UNKNOWN INDICATION
     Route: 065

REACTIONS (2)
  - Abortion induced [Unknown]
  - Maternal exposure during pregnancy [Recovered/Resolved]
